FAERS Safety Report 6929357-4 (Version None)
Quarter: 2010Q3

REPORT INFORMATION
  Report Type: 
  Country: None (occurrence: None)
  Receive Date: 20100818
  Receipt Date: 20100809
  Transmission Date: 20110219
  Serious: Yes (Hospitalization, Other)
  Sender: FDA-Public Use
  Company Number: FR-JNJFOC-20100510843

PATIENT
  Age: 40 Year
  Sex: Female

DRUGS (27)
  1. TOPIRAMATE [Suspect]
     Indication: BIPOLAR I DISORDER
     Route: 048
  2. GYNO PEVARYL [Suspect]
     Indication: VAGINITIS BACTERIAL
     Route: 067
     Dates: start: 20081126, end: 20081202
  3. AMITRIPTYLINE HCL [Suspect]
     Indication: BIPOLAR I DISORDER
     Dosage: 1 BOTTLE
     Route: 048
  4. AMITRIPTYLINE HCL [Suspect]
     Route: 048
  5. LEXOMIL [Suspect]
     Indication: BIPOLAR I DISORDER
     Route: 048
  6. LEXOMIL [Suspect]
     Route: 048
  7. RIVOTRIL [Suspect]
     Indication: BIPOLAR I DISORDER
     Route: 048
  8. RIVOTRIL [Suspect]
     Route: 048
  9. LYSANXIA [Suspect]
     Indication: BIPOLAR I DISORDER
     Route: 048
  10. ZYPREXA [Suspect]
     Indication: BIPOLAR I DISORDER
     Route: 048
  11. ZYPREXA [Suspect]
     Route: 048
  12. ZYPREXA [Suspect]
     Route: 048
  13. ZYPREXA [Suspect]
     Route: 048
  14. IMOVANE [Suspect]
     Indication: BIPOLAR I DISORDER
     Route: 048
  15. LARGACTIL [Suspect]
     Indication: BIPOLAR I DISORDER
     Route: 048
  16. SERESTA [Suspect]
     Indication: BIPOLAR I DISORDER
     Route: 048
  17. SPASFON [Suspect]
     Indication: PRODUCT USED FOR UNKNOWN INDICATION
     Route: 048
  18. EFFEXOR [Suspect]
     Indication: BIPOLAR I DISORDER
     Route: 048
  19. EFFEXOR [Suspect]
     Route: 048
  20. STILNOX [Suspect]
     Indication: BIPOLAR I DISORDER
     Route: 048
  21. TRIMEPRAZINE TAB [Suspect]
     Indication: BIPOLAR I DISORDER
     Route: 048
  22. TRIMEPRAZINE TAB [Suspect]
     Route: 048
  23. SEROPLEX [Suspect]
     Indication: BIPOLAR I DISORDER
     Route: 048
     Dates: start: 20090213, end: 20090228
  24. AKINETON [Suspect]
     Indication: BIPOLAR I DISORDER
     Route: 048
  25. NEULEPTIL [Suspect]
     Indication: BIPOLAR I DISORDER
     Dosage: 10 DROPS IN THE MORNING / 40 DROPS IN THE EVENING
     Route: 048
  26. AMOXICILLIN [Suspect]
     Indication: PRODUCT USED FOR UNKNOWN INDICATION
     Route: 048
  27. FLAGYL [Suspect]
     Indication: VAGINITIS BACTERIAL
     Route: 067
     Dates: start: 20081126, end: 20081202

REACTIONS (3)
  - DRUG EXPOSURE DURING PREGNANCY [None]
  - INTRA-UTERINE DEATH [None]
  - OFF LABEL USE [None]
